FAERS Safety Report 17438614 (Version 42)
Quarter: 2025Q1

REPORT INFORMATION
  Report Type: Report from Study
  Country: US (occurrence: US)
  Receive Date: 20200220
  Receipt Date: 20250108
  Transmission Date: 20250409
  Serious: Yes (Hospitalization, Other)
  Sender: TAKEDA
  Company Number: US-SHIRE-US202006432

PATIENT
  Age: 57 Year
  Sex: Female
  Weight: 101 kg

DRUGS (60)
  1. HUMAN IMMUNOGLOBULIN G [Suspect]
     Active Substance: HUMAN IMMUNOGLOBULIN G
     Indication: Immunodeficiency common variable
     Dosage: 12 GRAM, 1/WEEK
     Dates: start: 20170217
  2. HUMAN IMMUNOGLOBULIN G [Suspect]
     Active Substance: HUMAN IMMUNOGLOBULIN G
     Dosage: 12 GRAM, 1/WEEK
     Dates: start: 20170802
  3. HUMAN IMMUNOGLOBULIN G [Suspect]
     Active Substance: HUMAN IMMUNOGLOBULIN G
     Dosage: 12 GRAM, 1/WEEK
     Dates: start: 20170804
  4. HUMAN IMMUNOGLOBULIN G [Suspect]
     Active Substance: HUMAN IMMUNOGLOBULIN G
     Dosage: 12 GRAM, 1/WEEK
  5. HUMAN IMMUNOGLOBULIN G [Suspect]
     Active Substance: HUMAN IMMUNOGLOBULIN G
     Dosage: 12 GRAM, 1/WEEK
  6. HUMAN IMMUNOGLOBULIN G [Suspect]
     Active Substance: HUMAN IMMUNOGLOBULIN G
     Dosage: 14 GRAM, 1/WEEK
  7. DIPHENHYDRAMINE [Concomitant]
     Active Substance: DIPHENHYDRAMINE
  8. ACETAMINOPHEN [Concomitant]
     Active Substance: ACETAMINOPHEN
  9. PNEUMOVAX 23 [Concomitant]
     Active Substance: PNEUMOCOCCAL VACCINE, POLYVALENT 23
  10. XANAX [Concomitant]
     Active Substance: ALPRAZOLAM
  11. DIPHENHYDRAMINE HYDROCHLORIDE [Concomitant]
     Active Substance: DIPHENHYDRAMINE HYDROCHLORIDE
  12. MAXALT [Concomitant]
     Active Substance: RIZATRIPTAN BENZOATE
  13. POTASSIUM CHLORIDE [Concomitant]
     Active Substance: POTASSIUM CHLORIDE
  14. MESALAMINE [Concomitant]
     Active Substance: MESALAMINE
  15. EPINEPHRINE [Concomitant]
     Active Substance: EPINEPHRINE
  16. NYSTATIN [Concomitant]
     Active Substance: NYSTATIN
  17. AZITHROMYCIN [Concomitant]
     Active Substance: AZITHROMYCIN
  18. VITAMIN D [Concomitant]
     Active Substance: VITAMIN D NOS
  19. CARAFATE [Concomitant]
     Active Substance: SUCRALFATE
  20. ROWASA [Concomitant]
     Active Substance: MESALAMINE
  21. BREO ELLIPTA [Concomitant]
     Active Substance: FLUTICASONE FUROATE\VILANTEROL TRIFENATATE
  22. LASIX [Concomitant]
     Active Substance: FUROSEMIDE
  23. ALKA-SELTZER PLUS COLD AND COUGH [Concomitant]
     Active Substance: ACETAMINOPHEN\CHLORPHENIRAMINE\DEXTROMETHORPHAN\PHENYLEPHRINE
  24. PEPTO-BISMOL [Concomitant]
     Active Substance: BISMUTH SUBSALICYLATE
  25. FLUZONE QUADRIVALENT NOS [Concomitant]
     Active Substance: INFLUENZA A VIRUS A/CALIFORNIA/7/2009 X-179A (H1N1) ANTIGEN (FORMALDEHYDE INACTIVATED)\INFLUENZA A V
  26. HUMULIN N [Concomitant]
     Active Substance: INSULIN HUMAN
  27. PREDNISONE [Concomitant]
     Active Substance: PREDNISONE
  28. ASPIRIN [Concomitant]
     Active Substance: ASPIRIN
  29. GABAPENTIN [Concomitant]
     Active Substance: GABAPENTIN
  30. ALBUTEROL SULFATE [Concomitant]
     Active Substance: ALBUTEROL SULFATE
  31. ULORIC [Concomitant]
     Active Substance: FEBUXOSTAT
  32. CLONIDINE HYDROCHLORIDE [Concomitant]
     Active Substance: CLONIDINE HYDROCHLORIDE
  33. MINOCYCLINE [Concomitant]
     Active Substance: MINOCYCLINE HYDROCHLORIDE
  34. IMODIUM [Concomitant]
     Active Substance: LOPERAMIDE HYDROCHLORIDE
  35. LIDOCAINE AND PRILOCAINE [Concomitant]
     Active Substance: LIDOCAINE\PRILOCAINE
  36. LIDODERM [Concomitant]
     Active Substance: LIDOCAINE
  37. KETOROLAC TROMETHAMINE [Concomitant]
     Active Substance: KETOROLAC TROMETHAMINE
  38. FLEXERIL [Concomitant]
     Active Substance: CYCLOBENZAPRINE HYDROCHLORIDE
  39. MIGRANAL [Concomitant]
     Active Substance: DIHYDROERGOTAMINE MESYLATE
  40. SODIUM CHLORIDE [Concomitant]
     Active Substance: SODIUM CHLORIDE
  41. CINNAMON [Concomitant]
     Active Substance: CINNAMON
  42. HYDROCORTISONE [Concomitant]
     Active Substance: HYDROCORTISONE
  43. MIRALAX [Concomitant]
     Active Substance: POLYETHYLENE GLYCOL 3350
  44. Lmx [Concomitant]
  45. NOVOLOG [Concomitant]
     Active Substance: INSULIN ASPART
  46. ALOE [Concomitant]
     Active Substance: ALOE
  47. TESSALON [Concomitant]
     Active Substance: BENZONATATE
  48. VENTOLIN [Concomitant]
     Active Substance: ALBUTEROL SULFATE
  49. A AND D [Concomitant]
  50. COLD COUGH [Concomitant]
  51. VITAMIN D2 [Concomitant]
     Active Substance: ERGOCALCIFEROL
  52. LACIDIPINE [Concomitant]
     Active Substance: LACIDIPINE
  53. ALBUTEROL [Concomitant]
     Active Substance: ALBUTEROL
  54. OXYBUTYNIN CHLORIDE [Concomitant]
     Active Substance: OXYBUTYNIN CHLORIDE
  55. CYCLOBENZAPRINE HYDROCHLORIDE [Concomitant]
     Active Substance: CYCLOBENZAPRINE HYDROCHLORIDE
  56. VITAMIN D3 [Concomitant]
     Active Substance: CHOLECALCIFEROL
  57. CLONIDINE [Concomitant]
     Active Substance: CLONIDINE
  58. BENZONATATE [Concomitant]
     Active Substance: BENZONATATE
  59. NOVOLOG [Concomitant]
     Active Substance: INSULIN ASPART
  60. ASPIRIN [Concomitant]
     Active Substance: ASPIRIN

REACTIONS (68)
  - Weight increased [Unknown]
  - Lip oedema [Unknown]
  - Hyponatraemia [Unknown]
  - Pneumonia [Unknown]
  - Lower respiratory tract infection [Unknown]
  - Blood sodium decreased [Unknown]
  - Craniofacial fracture [Unknown]
  - Kidney infection [Unknown]
  - Haemorrhage [Unknown]
  - Reflux nephropathy [Unknown]
  - Vascular device infection [Unknown]
  - Cataract [Unknown]
  - Erosive oesophagitis [Unknown]
  - Herpes zoster infection neurological [Unknown]
  - Cardiac failure [Unknown]
  - Urinary tract infection [Unknown]
  - Asthma [Unknown]
  - Oedema peripheral [Unknown]
  - Dyspnoea [Unknown]
  - Bone disorder [Unknown]
  - Respiratory tract infection viral [Unknown]
  - Fluid retention [Unknown]
  - Blood glucose increased [Unknown]
  - Secretion discharge [Unknown]
  - Renal cyst [Unknown]
  - Drug hypersensitivity [Unknown]
  - Exostosis [Unknown]
  - Sinusitis [Recovered/Resolved]
  - Fall [Unknown]
  - Joint injury [Unknown]
  - Gastroenteritis viral [Unknown]
  - Ligament injury [Unknown]
  - Bladder disorder [Unknown]
  - Road traffic accident [Unknown]
  - Gout [Unknown]
  - Post-traumatic stress disorder [Unknown]
  - Ulcer [Unknown]
  - Obstructive airways disorder [Unknown]
  - Sinus congestion [Unknown]
  - Ear infection [Unknown]
  - Tooth infection [Unknown]
  - Dermatitis contact [Unknown]
  - Upper respiratory tract infection [Unknown]
  - Insurance issue [Unknown]
  - Depression [Unknown]
  - Illness [Unknown]
  - Gastrooesophageal reflux disease [Unknown]
  - Paranasal sinus hypersecretion [Unknown]
  - Device dislocation [Unknown]
  - Respiratory tract infection [Recovered/Resolved]
  - Infusion site discharge [Unknown]
  - Rosacea [Unknown]
  - Product dose omission issue [Unknown]
  - Infusion site mass [Unknown]
  - Balance disorder [Unknown]
  - Contusion [Unknown]
  - Malaise [Unknown]
  - Anxiety [Unknown]
  - Infusion site swelling [Unknown]
  - Arthralgia [Unknown]
  - Urticaria [Unknown]
  - Fatigue [Unknown]
  - Rash [Unknown]
  - Fluid imbalance [Unknown]
  - Blood glucose decreased [Unknown]
  - Blood potassium abnormal [Unknown]
  - Cardiac disorder [Unknown]
  - Blood pressure fluctuation [Unknown]

NARRATIVE: CASE EVENT DATE: 20200131
